FAERS Safety Report 8606224-1 (Version None)
Quarter: 2012Q3

REPORT INFORMATION
  Report Type: 
  Country: None (occurrence: None)
  Receive Date: 20120820
  Receipt Date: 19960708
  Transmission Date: 20120928
  Serious: Yes (Hospitalization)
  Sender: FDA-Public Use
  Company Number: US-ROCHE-1101280

PATIENT
  Sex: Male

DRUGS (3)
  1. HEPARIN [Concomitant]
  2. ACTIVASE [Suspect]
     Indication: ACUTE MYOCARDIAL INFARCTION
  3. NITROGLYCERIN [Concomitant]
     Route: 042

REACTIONS (1)
  - CHEST PAIN [None]
